FAERS Safety Report 8172585-3 (Version None)
Quarter: 2012Q1

REPORT INFORMATION
  Report Type: 
  Country: None (occurrence: None)
  Receive Date: 20120229
  Receipt Date: 20120225
  Transmission Date: 20120608
  Serious: No
  Sender: FDA-Public Use
  Company Number: US-PFIZER INC-2012050430

PATIENT
  Sex: Female
  Weight: 78.912 kg

DRUGS (1)
  1. TOVIAZ [Suspect]
     Indication: POLLAKIURIA
     Dosage: 8 MG, 1X/DAY
     Route: 048
     Dates: start: 20120223, end: 20120225

REACTIONS (2)
  - URINE OUTPUT DECREASED [None]
  - FLUID RETENTION [None]
